FAERS Safety Report 9585350 (Version 1)
Quarter: 2013Q4

REPORT INFORMATION
  Report Type: Spontaneous
  Country: US (occurrence: US)
  Receive Date: 20131002
  Receipt Date: 20131002
  Transmission Date: 20140711
  Serious: No
  Sender: FDA-Public Use
  Company Number: US-AMGEN-USASP2013064143

PATIENT
  Sex: Female
  Weight: 58.5 kg

DRUGS (1)
  1. ENBREL [Suspect]
     Indication: PRODUCT USED FOR UNKNOWN INDICATION
     Dosage: 50 MG, 2 TIMES/WK
     Route: 058
     Dates: start: 20130706

REACTIONS (4)
  - Nausea [Unknown]
  - Vomiting [Unknown]
  - Impaired healing [Unknown]
  - Fatigue [Unknown]
